FAERS Safety Report 5642186-7 (Version None)
Quarter: 2008Q1

REPORT INFORMATION
  Report Type: 
  Country: None (occurrence: None)
  Receive Date: 20080225
  Receipt Date: 20080212
  Transmission Date: 20080703
  Serious: Yes (Other)
  Sender: FDA-Public Use
  Company Number: US022667

PATIENT
  Age: 5 Year
  Sex: Female

DRUGS (2)
  1. TRISENOX [Suspect]
     Indication: ACUTE PROMYELOCYTIC LEUKAEMIA
     Dosage: 0.15 MG/KG INTRAVENOUS DRIP
     Route: 041
  2. TRISENOX [Suspect]
     Indication: ACUTE PROMYELOCYTIC LEUKAEMIA
     Dosage: 0.1 MG/KG INTRAVENOUS DRIP
     Route: 041

REACTIONS (5)
  - ACUTE PROMYELOCYTIC LEUKAEMIA DIFFERENTIATION SYNDROME [None]
  - ANOREXIA [None]
  - HYPERGLYCAEMIA [None]
  - NEURALGIA [None]
  - PNEUMONITIS [None]
